FAERS Safety Report 5295617-9 (Version None)
Quarter: 2007Q2

REPORT INFORMATION
  Report Type: 
  Country: None (occurrence: None)
  Receive Date: 20070412
  Receipt Date: 20070404
  Transmission Date: 20071010
  Serious: Yes (Hospitalization)
  Sender: FDA-Public Use
  Company Number: DE-ABBOTT-07P-062-0364164-00

PATIENT
  Sex: Male

DRUGS (1)
  1. KLACID UNO [Suspect]
     Indication: PNEUMONIA
     Route: 048
     Dates: start: 20070301

REACTIONS (1)
  - GASTROINTESTINAL HAEMORRHAGE [None]
